FAERS Safety Report 9424715 (Version 1)
Quarter: 2013Q3

REPORT INFORMATION
  Report Type: Spontaneous
  Country: US (occurrence: US)
  Receive Date: 20130729
  Receipt Date: 20130729
  Transmission Date: 20140515
  Serious: Yes (Death)
  Sender: FDA-Public Use
  Company Number: US-PFIZER INC-2013218525

PATIENT
  Age: 78 Year
  Sex: Male

DRUGS (1)
  1. INLYTA [Suspect]
     Dosage: 1 TABLET TWICE DAILY
     Dates: start: 20130125

REACTIONS (1)
  - Death [Fatal]
